FAERS Safety Report 16431375 (Version 1)
Quarter: 2019Q2

REPORT INFORMATION
  Report Type: Spontaneous
  Country: CA (occurrence: CA)
  Receive Date: 20190614
  Receipt Date: 20190614
  Transmission Date: 20190711
  Serious: Yes (Other)
  Sender: FDA-Public Use
  Company Number: CA-PFIZER INC-2019251344

PATIENT
  Age: 80 Year
  Sex: Female

DRUGS (11)
  1. CORTEF [HYDROCORTISONE] [Concomitant]
     Dosage: UNK
     Route: 048
  2. ASPIRIN [ACETYLSALICYLIC ACID] [Concomitant]
     Active Substance: ASPIRIN
     Indication: CORONARY ARTERY THROMBOSIS
     Dosage: 80 MG, 1X/DAY
     Route: 048
     Dates: start: 1995
  3. SYNTHROID [Concomitant]
     Active Substance: LEVOTHYROXINE SODIUM
     Dosage: 0.1 MG, DAILY
     Route: 048
  4. CORTEF [HYDROCORTISONE] [Concomitant]
     Dosage: 2X/DAY (10 MG AM, 2.5 MG PM)
     Route: 048
     Dates: start: 2012, end: 20171226
  5. CORTEF [HYDROCORTISONE] [Concomitant]
     Dosage: 10 MG, 1X/DAY (AM)
     Route: 048
     Dates: start: 20171226
  6. VITAMIN B12 [Concomitant]
     Active Substance: CYANOCOBALAMIN
     Dosage: 1200 UG, DAILY
     Route: 048
  7. AMLODIPINE BESILATE [Suspect]
     Active Substance: AMLODIPINE BESYLATE
     Indication: BLOOD PRESSURE ABNORMAL
     Dosage: 2.5 MG, UNK
     Route: 048
     Dates: start: 2018
  8. CALCIUM/VITAMIN D [CALCIUM CARBONATE;ERGOCALCIFEROL] [Concomitant]
     Dosage: 500MG/800 UNITS, DAILY
     Route: 048
  9. INSULIN [Suspect]
     Active Substance: INSULIN NOS
     Dosage: UNK
  10. SIMVASTATIN. [Concomitant]
     Active Substance: SIMVASTATIN
     Dosage: 40 MG, DAILY
     Route: 048
  11. ACETAMINOPHEN. [Concomitant]
     Active Substance: ACETAMINOPHEN
     Indication: HEADACHE
     Dosage: 1000 MG, AS NEEDED (EVERY 6 H AS NEEDED)
     Route: 048

REACTIONS (1)
  - Loss of consciousness [Unknown]
